FAERS Safety Report 21017083 (Version 1)
Quarter: 2022Q2

REPORT INFORMATION
  Report Type: Spontaneous
  Country: BR (occurrence: BR)
  Receive Date: 20220628
  Receipt Date: 20220628
  Transmission Date: 20220721
  Serious: Yes (Death, Hospitalization, Other)
  Sender: FDA-Public Use
  Company Number: BR-BIOGEN-2022BI01135226

PATIENT
  Age: 1 Year

DRUGS (1)
  1. SPINRAZA [Suspect]
     Active Substance: NUSINERSEN
     Indication: Spinal muscular atrophy

REACTIONS (4)
  - Cerebral hypoperfusion [Fatal]
  - Shock [Unknown]
  - Bacteraemia [Unknown]
  - Respiratory tract infection [Unknown]
